FAERS Safety Report 8300386-1 (Version None)
Quarter: 2012Q2

REPORT INFORMATION
  Report Type: 
  Country: None (occurrence: None)
  Receive Date: 20120420
  Receipt Date: 20120409
  Transmission Date: 20120825
  Serious: Yes (Disabling)
  Sender: FDA-Public Use
  Company Number: US-CELGENEUS-163-21660-12021064

PATIENT
  Sex: Female
  Weight: 59.02 kg

DRUGS (6)
  1. ZOLOFT [Concomitant]
     Route: 065
  2. METOPROLOL TARTRATE [Concomitant]
     Route: 065
  3. ABRAXANE [Suspect]
     Dosage: 130 MILLIGRAM
     Route: 041
     Dates: start: 20111031, end: 20120130
  4. WARFARIN SODIUM [Concomitant]
     Route: 065
  5. FUROSEMIDE [Concomitant]
     Route: 065
  6. SYNTHROID [Concomitant]
     Route: 065

REACTIONS (2)
  - VISION BLURRED [None]
  - DRY EYE [None]
